FAERS Safety Report 6603314-X (Version None)
Quarter: 2010Q1

REPORT INFORMATION
  Report Type: 
  Country: None (occurrence: None)
  Receive Date: 20100226
  Receipt Date: 20090113
  Transmission Date: 20100710
  Serious: No
  Sender: FDA-Public Use
  Company Number: A0763440A

PATIENT
  Age: 79 Year
  Sex: Female

DRUGS (7)
  1. VALTREX [Suspect]
     Dosage: 500MG PER DAY
     Route: 048
     Dates: start: 20060101, end: 20090111
  2. CORGARD [Concomitant]
  3. SYNTHROID [Concomitant]
  4. LISINOPRIL AND HYDROCHLOROTHIAZIDE [Concomitant]
  5. ESTER-C [Concomitant]
  6. CALTRATE [Concomitant]
  7. ALEVE (CAPLET) [Concomitant]

REACTIONS (2)
  - RASH [None]
  - STOMATITIS [None]
